FAERS Safety Report 8535422-0 (Version None)
Quarter: 2012Q3

REPORT INFORMATION
  Report Type: 
  Country: None (occurrence: None)
  Receive Date: 20120725
  Receipt Date: 20120716
  Transmission Date: 20120928
  Serious: No
  Sender: FDA-Public Use
  Company Number: US-B.I. PHARMACEUTICALS,INC./RIDGEFIELD-2012-BP-15818BP

PATIENT
  Sex: Male

DRUGS (10)
  1. SIMVASTATIN [Concomitant]
     Indication: BLOOD CHOLESTEROL
     Dosage: 40 MG
     Route: 048
  2. LEVOBUNOLOL HCL [Concomitant]
     Indication: GLAUCOMA
     Dosage: 20 MG
  3. ALLOPURINOL [Concomitant]
     Indication: GOUT
     Dosage: 300 MG
     Route: 048
  4. COUMADIN [Concomitant]
     Indication: ANTICOAGULANT THERAPY
     Dosage: 1.25 MG
     Route: 048
     Dates: start: 20020101
  5. METHIMAZOLE [Concomitant]
     Indication: THYROID DISORDER
     Dosage: 5 MG
     Route: 048
  6. LISINOPRIL [Concomitant]
     Indication: CARDIAC DISORDER
     Dosage: 20 MG
     Route: 048
  7. ASPIRIN [Concomitant]
     Indication: CARDIAC DISORDER
     Dosage: 81 MG
     Route: 048
  8. LUMIGAN [Concomitant]
     Indication: EYE DISORDER
  9. ASTRIDE [Concomitant]
     Indication: PROSTATIC DISORDER
     Route: 048
  10. SPIRIVA [Suspect]
     Indication: DYSPNOEA EXERTIONAL
     Dosage: 18 MCG
     Route: 055
     Dates: start: 20120706

REACTIONS (1)
  - VERTIGO [None]
